FAERS Safety Report 4871042-7 (Version None)
Quarter: 2005Q4

REPORT INFORMATION
  Report Type: 
  Country: None (occurrence: None)
  Receive Date: 20051229
  Receipt Date: 20051219
  Transmission Date: 20060501
  Serious: Yes (Death, Hospitalization)
  Sender: FDA-Public Use
  Company Number: FR200512002923

PATIENT
  Age: 38 Year
  Sex: Male

DRUGS (2)
  1. PROZAC [Suspect]
     Indication: DEPRESSION
     Dosage: ORAL
     Route: 048
     Dates: start: 20050615, end: 20050919
  2. SUBUTEX [Concomitant]

REACTIONS (25)
  - ANOREXIA [None]
  - ASTHENIA [None]
  - BONE MARROW FAILURE [None]
  - C-REACTIVE PROTEIN INCREASED [None]
  - CARDIAC DEATH [None]
  - CARDIAC DISORDER [None]
  - COAGULATION TIME PROLONGED [None]
  - COAGULOPATHY [None]
  - CYTOMEGALOVIRUS ANTIBODY POSITIVE [None]
  - ELECTROCARDIOGRAM ABNORMAL [None]
  - ENDOCARDITIS [None]
  - ENDOCARDITIS STAPHYLOCOCCAL [None]
  - HYPONATRAEMIA [None]
  - HYPOXIA [None]
  - KAOLIN CEPHALIN CLOTTING TIME PROLONGED [None]
  - MELAENA [None]
  - PALLOR [None]
  - PANCYTOPENIA [None]
  - PROTHROMBIN TIME RATIO DECREASED [None]
  - PROTHROMBIN TIME SHORTENED [None]
  - PULMONARY EMBOLISM [None]
  - PURPURA [None]
  - RENAL FAILURE [None]
  - SEPSIS [None]
  - TRICUSPID VALVE INCOMPETENCE [None]
